FAERS Safety Report 14047559 (Version 1)
Quarter: 2017Q4

REPORT INFORMATION
  Report Type: Spontaneous
  Country: US (occurrence: US)
  Receive Date: 20171005
  Receipt Date: 20171005
  Transmission Date: 20180321
  Serious: No
  Sender: FDA-Public Use
  Company Number: US-TEVA-810705USA

PATIENT
  Sex: Female

DRUGS (1)
  1. PROAIR HFA [Suspect]
     Active Substance: ALBUTEROL SULFATE

REACTIONS (6)
  - Wheezing [Unknown]
  - Palpitations [Unknown]
  - Dyspnoea [Unknown]
  - Dizziness [Unknown]
  - Pain [Unknown]
  - Heart rate increased [Unknown]
